FAERS Safety Report 16740092 (Version 3)
Quarter: 2019Q4

REPORT INFORMATION
  Report Type: Spontaneous
  Country: US (occurrence: US)
  Receive Date: 20190826
  Receipt Date: 20191011
  Transmission Date: 20200122
  Serious: Yes (Hospitalization)
  Sender: FDA-Public Use
  Company Number: US-PFIZER INC-2019357659

PATIENT
  Age: 16 Year
  Sex: Male

DRUGS (6)
  1. ZOLOFT [Suspect]
     Active Substance: SERTRALINE HYDROCHLORIDE
     Indication: AUTISM SPECTRUM DISORDER
  2. LEVOCARNITINE. [Concomitant]
     Active Substance: LEVOCARNITINE
     Dosage: UNK
  3. FEXOFENADINE [Concomitant]
     Active Substance: FEXOFENADINE HYDROCHLORIDE
     Dosage: UNK
  4. DEPAKOTE [Interacting]
     Active Substance: DIVALPROEX SODIUM
     Indication: EPILEPSY
     Dosage: UNK
  5. CLONAZEPAM. [Concomitant]
     Active Substance: CLONAZEPAM
     Indication: EPILEPSY
     Dosage: UNK
  6. CLONIDINE. [Concomitant]
     Active Substance: CLONIDINE
     Indication: EPILEPSY

REACTIONS (2)
  - Hyponatraemia [Recovered/Resolved]
  - Drug interaction [Unknown]
